FAERS Safety Report 12179253 (Version 1)
Quarter: 2016Q1

REPORT INFORMATION
  Report Type: Report from Study
  Country: US (occurrence: None)
  Receive Date: 20160315
  Receipt Date: 20160315
  Transmission Date: 20160526
  Serious: Yes (Death, Other)
  Sender: FDA-Public Use
  Company Number: US-MDT-ADR-2016-00416

PATIENT
  Age: 67 Year
  Sex: Female

DRUGS (2)
  1. DILAUDID [Suspect]
     Active Substance: HYDROMORPHONE HYDROCHLORIDE
     Indication: CANCER PAIN
     Dosage: 0.50005 MG/DAY
  2. BACLOFEN INTRATHECAL 50.0 MCG/ML [Suspect]
     Active Substance: BACLOFEN
     Indication: CANCER PAIN
     Dosage: 50.005 MCG/DAY

REACTIONS (4)
  - Headache [None]
  - Plasma cell myeloma [None]
  - Nausea [None]
  - Vomiting [None]
